FAERS Safety Report 4602776-7 (Version None)
Quarter: 2005Q1

REPORT INFORMATION
  Report Type: 
  Country: None (occurrence: None)
  Receive Date: 20050309
  Receipt Date: 20050225
  Transmission Date: 20050727
  Serious: Yes (Disabling)
  Sender: FDA-Public Use
  Company Number: IT-JNJFOC-20050301653

PATIENT
  Sex: Female

DRUGS (5)
  1. CONTRAMAL [Suspect]
     Route: 030
  2. DELTACORTENE [Concomitant]
     Route: 049
  3. LUCEN [Concomitant]
     Route: 049
  4. LEDERFOLIN [Concomitant]
     Route: 049
  5. EUTIROX [Concomitant]
     Route: 049

REACTIONS (4)
  - ASTHENIA [None]
  - DYSARTHRIA [None]
  - HEADACHE [None]
  - NAUSEA [None]
